FAERS Safety Report 8895746 (Version 1)
Quarter: 2012Q4

REPORT INFORMATION
  Report Type: 
  Country: US (occurrence: US)
  Receive Date: 20121108
  Receipt Date: 20121108
  Transmission Date: 20130627
  Serious: No
  Sender: FDA-Public Use
  Company Number: US-BAYER-2012-116461

PATIENT
  Age: 50 Year
  Sex: Female

DRUGS (1)
  1. CLIMARA [Suspect]
     Indication: HOT FLASHES
     Dosage: UNK
     Route: 062
     Dates: start: 20121102

REACTIONS (2)
  - Feeling hot [Not Recovered/Not Resolved]
  - Product quality issue [None]
